FAERS Safety Report 7369276-5 (Version None)
Quarter: 2011Q1

REPORT INFORMATION
  Report Type: 
  Country: None (occurrence: None)
  Receive Date: 20110323
  Receipt Date: 20110228
  Transmission Date: 20110831
  Serious: Yes (Other)
  Sender: FDA-Public Use
  Company Number: A0915858A

PATIENT
  Age: 79 Year
  Sex: Female

DRUGS (2)
  1. FOOD [Suspect]
  2. VOTRIENT [Suspect]
     Dosage: 600MG PER DAY
     Route: 048
     Dates: start: 20110217

REACTIONS (4)
  - LARYNGITIS [None]
  - TREATMENT NONCOMPLIANCE [None]
  - DIARRHOEA HAEMORRHAGIC [None]
  - DIARRHOEA [None]
